FAERS Safety Report 21488071 (Version 1)
Quarter: 2022Q4

REPORT INFORMATION
  Report Type: Report from Study
  Country: US (occurrence: US)
  Receive Date: 20221020
  Receipt Date: 20221020
  Transmission Date: 20230113
  Serious: No
  Sender: FDA-Public Use
  Company Number: US-ABBVIE-4163797

PATIENT
  Sex: Female

DRUGS (13)
  1. VENCLEXTA [Suspect]
     Active Substance: VENETOCLAX
     Indication: Acute myeloid leukaemia recurrent
     Route: 048
  2. Vitamin D3 Oral Capsule 25 MCG [Concomitant]
     Indication: Product used for unknown indication
  3. Selenium Oral Tablet 200 MCG [Concomitant]
     Indication: Product used for unknown indication
  4. Lisinopril Oral Tablet 2.5 MG [Concomitant]
     Indication: Product used for unknown indication
  5. Senna Plus Oral Tablet 8.6-50 MG [Concomitant]
     Indication: Product used for unknown indication
  6. Metoprolol Tartrate Oral Tablet 25 mg [Concomitant]
     Indication: Product used for unknown indication
  7. Robaxin Oral Tablet 500 MG [Concomitant]
     Indication: Product used for unknown indication
  8. Acyclovir Oral Tablet 400 MG [Concomitant]
     Indication: Product used for unknown indication
  9. Prochlorperazine Maleate Oral Tablet 10 mg [Concomitant]
     Indication: Product used for unknown indication
  10. Magnesium Oxide Oral Tablet 400 MG [Concomitant]
     Indication: Product used for unknown indication
  11. Posaconazole Oral Tablet Delayed Re 100 mg [Concomitant]
     Indication: Product used for unknown indication
  12. Iron Oral Tablet 325 (65 Fe) MG [Concomitant]
     Indication: Product used for unknown indication
  13. Rosuvastatin Calcium Oral Tablet 20  mg [Concomitant]
     Indication: Product used for unknown indication

REACTIONS (2)
  - Platelet count decreased [Unknown]
  - Red blood cell count decreased [Unknown]
